FAERS Safety Report 6073895-6 (Version None)
Quarter: 2009Q1

REPORT INFORMATION
  Report Type: 
  Country: None (occurrence: None)
  Receive Date: 20090211
  Receipt Date: 20090204
  Transmission Date: 20090719
  Serious: Yes (Hospitalization)
  Sender: FDA-Public Use
  Company Number: GB-MERCK-0901GBR00046

PATIENT
  Age: 72 Year
  Sex: Female

DRUGS (13)
  1. FOSAMAX [Suspect]
     Indication: OSTEOARTHRITIS
     Route: 048
  2. CALCIUM CARBONATE [Suspect]
     Indication: OSTEOARTHRITIS
     Route: 048
  3. CARBAMAZEPINE [Suspect]
     Indication: EPILEPSY
     Route: 048
  4. CODEINE PHOSPHATE [Suspect]
     Indication: MIGRAINE
     Route: 048
  5. ALUMINUM HYDROXIDE AND MAGNESIUM CARBONATE [Suspect]
     Route: 048
  6. PANTOPRAZOLE [Suspect]
     Route: 048
  7. ACETAMINOPHEN [Suspect]
     Indication: MIGRAINE
     Route: 048
  8. RISEDRONATE SODIUM [Suspect]
     Indication: OSTEOARTHRITIS
     Route: 048
  9. FLUTICASONE PROPIONATE AND SALMETEROL XINAFOATE [Suspect]
     Indication: ASTHMA
     Dates: start: 20050101
  10. LEVOTHYROXINE SODIUM [Suspect]
     Indication: HYPOTHYROIDISM
     Route: 048
  11. ALBUTEROL [Suspect]
     Indication: ASTHMA
  12. WARFARIN [Suspect]
     Indication: DEEP VEIN THROMBOSIS
     Route: 048
  13. ZOLMITRIPTAN [Suspect]
     Indication: MIGRAINE
     Route: 048

REACTIONS (4)
  - CEREBROVASCULAR ACCIDENT [None]
  - COUGH [None]
  - DYSPNOEA [None]
  - OFF LABEL USE [None]
